FAERS Safety Report 9353564 (Version 1)
Quarter: 2013Q2

REPORT INFORMATION
  Report Type: Spontaneous
  Country: US (occurrence: None)
  Receive Date: 20130617
  Receipt Date: 20130617
  Transmission Date: 20140414
  Serious: No
  Sender: FDA-Public Use
  Company Number: None

PATIENT
  Age: 78 Year
  Sex: Female
  Weight: 72.58 kg

DRUGS (8)
  1. DORZOLAMIDE [Suspect]
     Indication: GLAUCOMA
     Dosage: 1 DROP  INSERTING A DROP IN EACH EYE
     Dates: start: 20130425, end: 20130610
  2. ATENOLOL [Concomitant]
  3. AMLODIPINE [Concomitant]
  4. LEVOTHYROXIN [Concomitant]
  5. ALPHAGAN EYE DROP SOLUTION [Concomitant]
  6. ASPIRIN [Concomitant]
  7. MUTIVITAMIN [Concomitant]
  8. FLAXSEED OIL [Concomitant]

REACTIONS (4)
  - Eye irritation [None]
  - Lacrimation increased [None]
  - Dysgeusia [None]
  - Blepharospasm [None]
